FAERS Safety Report 4932071-8 (Version None)
Quarter: 2006Q1

REPORT INFORMATION
  Report Type: 
  Country: None (occurrence: None)
  Receive Date: 20060303
  Receipt Date: 20060112
  Transmission Date: 20060701
  Serious: Yes (Death, Hospitalization, Other)
  Sender: FDA-Public Use
  Company Number: SE-BRISTOL-MYERS SQUIBB COMPANY-13256185

PATIENT
  Sex: Male

DRUGS (2)
  1. HOLOXAN [Suspect]
     Indication: SARCOMA
     Route: 041
     Dates: start: 20060111, end: 20060112
  2. DOXORUBICIN HCL [Concomitant]

REACTIONS (4)
  - BLOOD CREATININE INCREASED [None]
  - DEATH [None]
  - LOSS OF CONSCIOUSNESS [None]
  - MUSCLE SPASMS [None]
